FAERS Safety Report 7482069-3 (Version None)
Quarter: 2011Q2

REPORT INFORMATION
  Report Type: 
  Country: None (occurrence: None)
  Receive Date: 20110516
  Receipt Date: 20110509
  Transmission Date: 20111010
  Serious: Yes (Other)
  Sender: FDA-Public Use
  Company Number: CHNY2011GB00449

PATIENT
  Age: 46 Year
  Sex: Male

DRUGS (7)
  1. VITAMINS NOS [Interacting]
  2. GINGER [Interacting]
  3. GARLIC [Interacting]
  4. ACETAMINOPHEN [Suspect]
     Indication: ANALGESIC THERAPY
     Dosage: 1000 MG, UNK
  5. GINSENG [Interacting]
  6. GINKGO BILOBA [Interacting]
  7. IBUPROFEN [Interacting]
     Indication: ANALGESIC THERAPY
     Dosage: 400 MG , UNK
     Route: 048

REACTIONS (2)
  - DRUG INTERACTION [None]
  - POST PROCEDURAL HAEMORRHAGE [None]
